FAERS Safety Report 6909194-7 (Version None)
Quarter: 2010Q3

REPORT INFORMATION
  Report Type: 
  Country: None (occurrence: None)
  Receive Date: 20100805
  Receipt Date: 20100802
  Transmission Date: 20110219
  Serious: Yes (Other)
  Sender: FDA-Public Use
  Company Number: US-ROXANE LABORATORIES, INC.-2010-RO-00953RO

PATIENT
  Age: 46 Year
  Sex: Female

DRUGS (15)
  1. LEVETIRACETAM [Suspect]
     Indication: CONVULSION
     Dosage: 1000 MG
  2. LEVETIRACETAM [Suspect]
     Dosage: 2000 MG
  3. LEVETIRACETAM [Suspect]
     Dosage: 500 MG
  4. LEVETIRACETAM [Suspect]
     Dosage: 1000 MG
  5. LEVETIRACETAM [Suspect]
     Dosage: 1500 MG
  6. TOPIRAMATE [Suspect]
     Indication: CONVULSION
     Dosage: 100 MG
  7. TOPIRAMATE [Suspect]
     Dosage: 800 MG
  8. TOPIRAMATE [Suspect]
     Dosage: 400 MG
  9. FEXOPHENADINE [Suspect]
     Indication: DRUG ERUPTION
  10. HYDROCORTISONE [Suspect]
     Indication: DRUG ERUPTION
     Route: 061
  11. DIPHENHYDRAMINE [Suspect]
     Indication: DRUG ERUPTION
  12. PHENYTOIN [Suspect]
     Indication: CONVULSION
  13. TEMOZOLOMIDE [Suspect]
     Indication: BRAIN NEOPLASM
  14. TEMOZOLOMIDE [Suspect]
     Indication: CHEMOTHERAPY
  15. PREGABALIN [Suspect]
     Indication: CONVULSION
     Dosage: 600 MG

REACTIONS (5)
  - BRADYPHRENIA [None]
  - DRUG ERUPTION [None]
  - HYPOKINESIA [None]
  - SEDATION [None]
  - SOMNOLENCE [None]
